FAERS Safety Report 25208134 (Version 1)
Quarter: 2025Q2

REPORT INFORMATION
  Report Type: Spontaneous
  Country: FR (occurrence: FR)
  Receive Date: 20250417
  Receipt Date: 20250417
  Transmission Date: 20250716
  Serious: Yes (Other)
  Sender: PFIZER
  Company Number: FR-PFIZER INC-202500073952

PATIENT

DRUGS (2)
  1. TUKYSA [Suspect]
     Active Substance: TUCATINIB
  2. TRASTUZUMAB [Suspect]
     Active Substance: TRASTUZUMAB

REACTIONS (1)
  - Cardiotoxicity [Unknown]
